FAERS Safety Report 9098642 (Version 1)
Quarter: 2013Q1

REPORT INFORMATION
  Report Type: Spontaneous
  Country: US (occurrence: US)
  Receive Date: 20130213
  Receipt Date: 20130213
  Transmission Date: 20140127
  Serious: No
  Sender: FDA-Public Use
  Company Number: US-BAYER-2013-017026

PATIENT
  Age: 79 Year
  Sex: Female
  Weight: 117.91 kg

DRUGS (20)
  1. ALEVE CAPLET/TABLET,MIDOL EXTENDED RELIEF CAPLET [Suspect]
     Indication: ARTHRALGIA
     Dosage: UNK
  2. ALEVE CAPLET/TABLET,MIDOL EXTENDED RELIEF CAPLET [Suspect]
     Indication: PAIN IN EXTREMITY
     Dosage: 3 DF, ONCE
     Route: 048
     Dates: start: 20130129
  3. POTASSIUM [Concomitant]
     Dosage: UNK
  4. FUROSEMIDE [Concomitant]
     Dosage: UNK
  5. METHOTREXATE [Concomitant]
     Dosage: UNK
  6. SPIRONOLACTONE [Concomitant]
     Dosage: UNK
  7. METFORMIN [Concomitant]
     Dosage: UNK
  8. MONTELUKAST [Concomitant]
     Dosage: UNK
  9. LEVOTHYROXINE [Concomitant]
     Dosage: UNK
  10. FOLIC ACID [Concomitant]
     Dosage: UNK
  11. MAGNESIUM [Concomitant]
     Dosage: UNK
  12. EQUATE ASPIRIN [Concomitant]
     Dosage: UNK
  13. SPIRIVA [Concomitant]
     Dosage: UNK
  14. SYMBICORT [Concomitant]
     Dosage: UNK
  15. ALBUTEROL SULFATE [Concomitant]
     Dosage: UNK
  16. MULTI-VITAMIN [Concomitant]
     Dosage: UNK
  17. CALCIUM WITH VITAMIN D [Concomitant]
     Dosage: UNK
  18. CINNAMON [Concomitant]
     Dosage: UNK
  19. XOLAIR [Concomitant]
     Dosage: UNK
  20. OXYGEN [Concomitant]
     Dosage: UNK

REACTIONS (2)
  - Drug ineffective [None]
  - Inappropriate schedule of drug administration [None]
